FAERS Safety Report 4478517-3 (Version None)
Quarter: 2004Q4

REPORT INFORMATION
  Report Type: 
  Country: None (occurrence: None)
  Receive Date: 20041018
  Receipt Date: 20041018
  Transmission Date: 20050328
  Serious: Yes (Hospitalization)
  Sender: FDA-Public Use
  Company Number: None

PATIENT
  Age: 61 Year
  Sex: Female
  Weight: 48.1 kg

DRUGS (2)
  1. FLUOROURACIL [Suspect]
     Indication: RECTAL CANCER
     Dosage: 5 FU 740MG IVP WEEKLY X6
  2. LEUCOVORIN [Suspect]
     Indication: RECTAL CANCER
     Dosage: 740 MG WEEKLY X6

REACTIONS (17)
  - ALANINE AMINOTRANSFERASE INCREASED [None]
  - ASPARTATE AMINOTRANSFERASE INCREASED [None]
  - ASTHENIA [None]
  - BLOOD ALBUMIN DECREASED [None]
  - BLOOD CHLORIDE INCREASED [None]
  - BLOOD UREA DECREASED [None]
  - DIARRHOEA [None]
  - DRUG INEFFECTIVE [None]
  - ENTEROCOLITIS INFECTIOUS [None]
  - HEPATITIS [None]
  - INFECTION [None]
  - LIVER FUNCTION TEST ABNORMAL [None]
  - NAUSEA [None]
  - PCO2 DECREASED [None]
  - PROTEIN TOTAL INCREASED [None]
  - STAPHYLOCOCCAL INFECTION [None]
  - VOMITING [None]
